FAERS Safety Report 5203772-1 (Version None)
Quarter: 2007Q1

REPORT INFORMATION
  Report Type: 
  Country: None (occurrence: None)
  Receive Date: 20070105
  Receipt Date: 20061228
  Transmission Date: 20070707
  Serious: Yes (Other)
  Sender: FDA-Public Use
  Company Number: 234423

PATIENT
  Age: 8 Year
  Sex: Male
  Weight: 22 kg

DRUGS (1)
  1. NUTROPIN AQ [Suspect]
     Indication: EMPTY SELLA SYNDROME
     Dosage: 1 MG, 6/WEEK, SUBCUTANEOUS
     Route: 058
     Dates: start: 20051130

REACTIONS (3)
  - ARTHRITIS [None]
  - GAIT DISTURBANCE [None]
  - PAIN IN EXTREMITY [None]
